FAERS Safety Report 6300052-8 (Version None)
Quarter: 2009Q3

REPORT INFORMATION
  Report Type: 
  Country: None (occurrence: None)
  Receive Date: 20090806
  Receipt Date: 20090728
  Transmission Date: 20100115
  Serious: Yes (Other)
  Sender: FDA-Public Use
  Company Number: US-ELI_LILLY_AND_COMPANY-US200907006820

PATIENT
  Age: 13 Year
  Sex: Female
  Weight: 77.098 kg

DRUGS (1)
  1. ZYPREXA [Suspect]

REACTIONS (3)
  - DYSPNOEA [None]
  - OFF LABEL USE [None]
  - WEIGHT INCREASED [None]
